FAERS Safety Report 9373308 (Version 1)
Quarter: 2013Q2

REPORT INFORMATION
  Report Type: Spontaneous
  Country: NL (occurrence: NL)
  Receive Date: 20130627
  Receipt Date: 20130627
  Transmission Date: 20140414
  Serious: Yes (Hospitalization)
  Sender: FDA-Public Use
  Company Number: NL-TEVA-414320ISR

PATIENT
  Age: 70 Year
  Sex: Female
  Weight: 74 kg

DRUGS (1)
  1. OXALIPLATINE [Suspect]
     Indication: RECTAL ADENOCARCINOMA
     Dosage: 150MG AT A TIME
     Route: 042
     Dates: start: 20130226

REACTIONS (2)
  - Dyspnoea [Recovered/Resolved]
  - Stridor [Recovered/Resolved]
